FAERS Safety Report 22048361 (Version 1)
Quarter: 2023Q1

REPORT INFORMATION
  Report Type: Spontaneous
  Country: ES (occurrence: ES)
  Receive Date: 20230301
  Receipt Date: 20230301
  Transmission Date: 20230418
  Serious: Yes (Hospitalization)
  Sender: FDA-Public Use
  Company Number: None

PATIENT
  Age: 80 Year
  Sex: Female

DRUGS (9)
  1. CLONAZEPAM [Suspect]
     Active Substance: CLONAZEPAM
     Indication: Epilepsy
     Route: 048
     Dates: start: 20210422, end: 20220921
  2. QUETIAPINE [Suspect]
     Active Substance: QUETIAPINE
     Indication: Persistent depressive disorder
     Route: 048
     Dates: start: 20210330, end: 20220928
  3. PARAFLUDETEN [Concomitant]
     Indication: Cataract
     Dosage: 20 TABLETS
     Route: 048
     Dates: start: 20211112
  4. BRINTELLIX [Concomitant]
     Active Substance: VORTIOXETINE HYDROBROMIDE
     Indication: Persistent depressive disorder
     Dosage: 28 TABLETS
     Route: 048
     Dates: start: 20210514
  5. LEVETIRACETAM [Concomitant]
     Active Substance: LEVETIRACETAM
     Indication: Partial seizures
     Dosage: 60 TABLETS
     Route: 048
     Dates: start: 20131022
  6. Clotrimazol Gine-Canesmed [Concomitant]
     Indication: Urinary tract infection
     Dosage: 1.0 APLIC C/24 H NOC,20 MG/G, 1 TUBE OF 20 G
     Route: 067
     Dates: start: 20210422
  7. ENALAPRIL [Concomitant]
     Active Substance: ENALAPRIL
     Indication: Essential hypertension
     Route: 048
     Dates: start: 20210108
  8. OMEPRAZOLE [Concomitant]
     Active Substance: OMEPRAZOLE
     Indication: Dyspepsia
     Dosage: 56 CAPSULES
     Route: 048
     Dates: start: 20121222
  9. Trazodone Normon [Concomitant]
     Indication: Persistent depressive disorder
     Dosage: 60 TABLETS?DAILY DOSE: 100 MILLIGRAM
     Route: 048
     Dates: start: 20200910

REACTIONS (3)
  - Hypersomnia [Recovered/Resolved]
  - Fall [Unknown]
  - Malaise [Unknown]

NARRATIVE: CASE EVENT DATE: 20220921
